FAERS Safety Report 18165575 (Version 1)
Quarter: 2020Q3

REPORT INFORMATION
  Report Type: Spontaneous
  Country: GB (occurrence: GB)
  Receive Date: 20200819
  Receipt Date: 20200819
  Transmission Date: 20201103
  Serious: Yes (Death, Life-Threatening, Hospitalization, Other)
  Sender: FDA-Public Use
  Company Number: GB-ALKEM LABORATORIES LIMITED-GB-ALKEM-2007-00001

PATIENT
  Age: 66 Year
  Sex: Male

DRUGS (8)
  1. COLCHICINE. [Interacting]
     Active Substance: COLCHICINE
     Indication: GOUT
     Dosage: 1.2 MILLIGRAM, QD, (EVERY 1 DAY)
     Route: 065
  2. MYCOPHENOLATE MOFETIL. [Suspect]
     Active Substance: MYCOPHENOLATE MOFETIL
     Indication: POSTOPERATIVE CARE
     Dosage: UNK, (EVERY)
     Route: 065
  3. CICLOSPORIN [Interacting]
     Active Substance: CYCLOSPORINE
     Indication: POSTOPERATIVE CARE
     Dosage: 150 MILLIGRAM, QD, (EVERY 1 DAY)
     Route: 065
  4. MYCOPHENOLATE MOFETIL. [Suspect]
     Active Substance: MYCOPHENOLATE MOFETIL
     Indication: GOUT
     Dosage: 500 MILLIGRAM, QD, (EVERY 1 DAY)
     Route: 065
  5. SIMVASTATIN. [Interacting]
     Active Substance: SIMVASTATIN
     Indication: MYOCARDIAL ISCHAEMIA
     Dosage: 60 MG, QD, (EVERY 1 DAY)
     Route: 048
  6. INSULIN [Concomitant]
     Active Substance: INSULIN NOS
     Indication: DIABETES MELLITUS
     Dosage: UNK, (EVERY)
     Route: 065
  7. METICORTEN [Interacting]
     Active Substance: PREDNISONE
     Indication: POSTOPERATIVE CARE
     Dosage: 7.5 MILLIGRAM, QD, (EVERY 1 DAY)
     Route: 048
  8. SIMVASTATIN. [Interacting]
     Active Substance: SIMVASTATIN
     Indication: HYPERLIPIDAEMIA
     Dosage: 30 MILLIGRAM, QD, (EVERY 1 DAY)
     Route: 048

REACTIONS (4)
  - Rhabdomyolysis [Fatal]
  - Myopathy toxic [Fatal]
  - Pneumonia [Fatal]
  - Drug interaction [Fatal]
